FAERS Safety Report 16478865 (Version 3)
Quarter: 2019Q4

REPORT INFORMATION
  Report Type: Spontaneous
  Country: JP (occurrence: JP)
  Receive Date: 20190626
  Receipt Date: 20191101
  Transmission Date: 20200122
  Serious: Yes (Hospitalization, Other)
  Sender: FDA-Public Use
  Company Number: JP-SA-2019SA168368

PATIENT
  Age: 70 Year
  Sex: Female
  Weight: 39.9 kg

DRUGS (10)
  1. TERPERAN [Concomitant]
     Active Substance: METOCLOPRAMIDE HYDROCHLORIDE
     Dosage: UNK
     Dates: start: 20190226, end: 20190608
  2. CAPECITABINE. [Suspect]
     Active Substance: CAPECITABINE
     Indication: GASTRIC CANCER
     Dosage: 1500 MG, Q12H
     Route: 048
     Dates: start: 20190129, end: 20190207
  3. ALOXI [Concomitant]
     Active Substance: PALONOSETRON HYDROCHLORIDE
     Dosage: UNK
     Dates: start: 20190129, end: 20190604
  4. DECADRON [DEXAMETHASONE SODIUM PHOSPHATE] [Concomitant]
     Dosage: UNK
     Dates: start: 20190129, end: 20190604
  5. ELPLAT [Suspect]
     Active Substance: OXALIPLATIN
     Indication: GASTRIC CANCER
     Dosage: 180 MG, Q3W
     Route: 041
     Dates: start: 20190129, end: 20190402
  6. ELPLAT [Suspect]
     Active Substance: OXALIPLATIN
     Dosage: 170 MG, Q3W
     Route: 041
     Dates: start: 20190423, end: 20190514
  7. EMEND [Concomitant]
     Active Substance: APREPITANT
     Dosage: UNK
     Dates: start: 20190129, end: 20190606
  8. CAPECITABINE. [Suspect]
     Active Substance: CAPECITABINE
     Dosage: 1200 MG
     Route: 048
     Dates: start: 20190219, end: 20190520
  9. ELPLAT [Suspect]
     Active Substance: OXALIPLATIN
     Dosage: 130 MG, Q3W
     Route: 041
     Dates: start: 20190604, end: 20190604
  10. OLANZAPINE. [Suspect]
     Active Substance: OLANZAPINE
     Indication: PROPHYLAXIS
     Dosage: 5 MG, 5 TIME IN 3 WEEKS
     Route: 048
     Dates: start: 20190218, end: 20190608

REACTIONS (9)
  - Hepatic function abnormal [Recovering/Resolving]
  - Neuropathy peripheral [Not Recovered/Not Resolved]
  - White blood cell count decreased [Recovered/Resolved]
  - Alanine aminotransferase increased [Recovering/Resolving]
  - Aspartate aminotransferase increased [Recovering/Resolving]
  - Platelet count decreased [Recovered/Resolved]
  - Haemoglobin decreased [Recovering/Resolving]
  - Febrile neutropenia [Recovered/Resolved]
  - Pyrexia [Recovered/Resolved]

NARRATIVE: CASE EVENT DATE: 20150515
